FAERS Safety Report 11839930 (Version 2)
Quarter: 2015Q4

REPORT INFORMATION
  Report Type: Spontaneous
  Country: TR (occurrence: TR)
  Receive Date: 20151216
  Receipt Date: 20151228
  Transmission Date: 20160305
  Serious: Yes (Hospitalization, Other)
  Sender: FDA-Public Use
  Company Number: TR-ACTAVIS-2015-27624

PATIENT
  Age: 60 Year
  Sex: Male

DRUGS (2)
  1. SILDENAFIL (UNKNOWN) [Suspect]
     Active Substance: SILDENAFIL
     Indication: ERECTILE DYSFUNCTION
     Dosage: 75 MG, 1/WEEK
     Route: 065
  2. SILDENAFIL (UNKNOWN) [Suspect]
     Active Substance: SILDENAFIL
     Dosage: 25 MG, 1/ THREE WEEKS
     Route: 065

REACTIONS (1)
  - Ischaemic stroke [Unknown]
